FAERS Safety Report 9066715 (Version 1)
Quarter: 2013Q1

REPORT INFORMATION
  Report Type: Spontaneous
  Country: US (occurrence: US)
  Receive Date: 20130214
  Receipt Date: 20130214
  Transmission Date: 20140127
  Serious: Yes (Other)
  Sender: FDA-Public Use
  Company Number: US-GLAXOSMITHKLINE-A0817906A

PATIENT
  Sex: Male

DRUGS (10)
  1. AVANDAMET [Suspect]
     Indication: DIABETES MELLITUS
     Route: 048
     Dates: start: 200408, end: 200812
  2. AVANDIA [Suspect]
     Indication: DIABETES MELLITUS
     Route: 048
     Dates: start: 200506, end: 200510
  3. FLEXERIL [Concomitant]
  4. LOVASTATIN [Concomitant]
  5. AVALIDE [Concomitant]
  6. METHADONE [Concomitant]
  7. EFFEXOR [Concomitant]
  8. DIOVAN [Concomitant]
  9. AVAPRO [Concomitant]
  10. OXYCONTIN [Concomitant]

REACTIONS (1)
  - Cerebrovascular accident [Not Recovered/Not Resolved]
